FAERS Safety Report 6096299-9 (Version None)
Quarter: 2009Q1

REPORT INFORMATION
  Report Type: 
  Country: None (occurrence: None)
  Receive Date: 20090227
  Receipt Date: 20081105
  Transmission Date: 20090719
  Serious: No
  Sender: FDA-Public Use
  Company Number: A0755012A

PATIENT
  Age: 41 Year
  Sex: Female

DRUGS (2)
  1. LAMICTAL [Suspect]
     Indication: BIPOLAR DISORDER
     Dates: start: 20020101, end: 20020101
  2. TRILEPTAL [Concomitant]

REACTIONS (3)
  - DRUG ADMINISTRATION ERROR [None]
  - RASH MACULAR [None]
  - SKIN DISCOLOURATION [None]
